FAERS Safety Report 9822302 (Version 2)
Quarter: 2014Q1

REPORT INFORMATION
  Report Type: Spontaneous
  Country: US (occurrence: US)
  Receive Date: 20140116
  Receipt Date: 20140122
  Transmission Date: 20141002
  Serious: Yes (Hospitalization, Other)
  Sender: FDA-Public Use
  Company Number: US-BAXTER-2014BAX001325

PATIENT
  Sex: Female

DRUGS (6)
  1. DIANEAL LOW CALCIUM [Suspect]
     Indication: PERITONEAL DIALYSIS
     Route: 033
     Dates: start: 201304
  2. DIANEAL LOW CALCIUM [Suspect]
     Indication: PERITONEAL DIALYSIS
     Route: 033
     Dates: start: 201304
  3. DIANEAL LOW CALCIUM (ULTRABAG) [Suspect]
     Indication: PERITONEAL DIALYSIS
     Route: 033
     Dates: start: 201304
  4. DIANEAL LOW CALCIUM (ULTRABAG) [Suspect]
     Indication: PERITONEAL DIALYSIS
     Route: 033
     Dates: start: 201304
  5. COUMADIN [Concomitant]
     Indication: CONGENITAL TRICUSPID VALVE ATRESIA
     Route: 048
  6. OXYGEN [Concomitant]
     Indication: CONGENITAL TRICUSPID VALVE ATRESIA
     Route: 045

REACTIONS (5)
  - Epistaxis [Recovered/Resolved]
  - Capillary fragility [Recovered/Resolved]
  - Weight increased [Unknown]
  - Abdominal pain [Unknown]
  - Ascites [Not Recovered/Not Resolved]
